FAERS Safety Report 10308066 (Version 2)
Quarter: 2014Q3

REPORT INFORMATION
  Report Type: Report from Study
  Country: US (occurrence: US)
  Receive Date: 20140716
  Receipt Date: 20140811
  Transmission Date: 20150326
  Serious: Yes (Death, Hospitalization)
  Sender: FDA-Public Use
  Company Number: US-SA-2014SA093414

PATIENT
  Age: 78 Year
  Sex: Female

DRUGS (12)
  1. NPH INSULIN [Concomitant]
     Active Substance: INSULIN BEEF
     Dosage: DOSE:20 UNIT(S)
     Route: 058
     Dates: start: 20100721
  2. NEPHRO-VITE RX [Concomitant]
     Route: 048
     Dates: start: 20090611
  3. NIFEDIPINE. [Concomitant]
     Active Substance: NIFEDIPINE
     Route: 048
     Dates: start: 20090513
  4. LOSARTAN [Concomitant]
     Active Substance: LOSARTAN
     Route: 048
     Dates: start: 20090513
  5. SENSIPAR [Concomitant]
     Active Substance: CINACALCET HYDROCHLORIDE
     Route: 048
     Dates: start: 20140421
  6. RENVELA [Suspect]
     Active Substance: SEVELAMER CARBONATE
     Indication: RENAL FAILURE CHRONIC
     Dosage: 4 TABS 3TIMES DAILY
     Route: 048
     Dates: start: 20131001, end: 20140610
  7. HYDRALAZINE [Concomitant]
     Active Substance: HYDRALAZINE HYDROCHLORIDE
     Route: 048
     Dates: start: 20131001
  8. LUMIGAN [Concomitant]
     Active Substance: BIMATOPROST
     Dates: start: 20090513
  9. SIMVASTATIN. [Concomitant]
     Active Substance: SIMVASTATIN
     Dates: start: 20090513
  10. VICODIN [Concomitant]
     Active Substance: ACETAMINOPHEN\HYDROCODONE BITARTRATE
     Dosage: 5MG; 325MG
     Dates: start: 20130320
  11. ASPIRIN. [Concomitant]
     Active Substance: ASPIRIN
     Dates: start: 20090513
  12. CALCITRIOL. [Concomitant]
     Active Substance: CALCITRIOL
     Dates: start: 20130411

REACTIONS (3)
  - Drug dose omission [Unknown]
  - Death [Fatal]
  - Hospitalisation [Unknown]

NARRATIVE: CASE EVENT DATE: 20140430
